FAERS Safety Report 5645341-5 (Version None)
Quarter: 2008Q1

REPORT INFORMATION
  Report Type: 
  Country: None (occurrence: None)
  Receive Date: 20080229
  Receipt Date: 20080222
  Transmission Date: 20080703
  Serious: Yes (Other)
  Sender: FDA-Public Use
  Company Number: B0509064A

PATIENT
  Age: 52 Year
  Sex: Female

DRUGS (4)
  1. VALTREX [Suspect]
     Indication: HERPES VIRUS INFECTION
     Route: 048
     Dates: start: 20080128
  2. SULPERAZON [Concomitant]
     Indication: DRUG USE FOR UNKNOWN INDICATION
     Route: 042
  3. TIENAM [Concomitant]
     Indication: DRUG USE FOR UNKNOWN INDICATION
     Dates: start: 20080201
  4. CONIEL [Concomitant]
     Indication: DRUG USE FOR UNKNOWN INDICATION
     Route: 048

REACTIONS (6)
  - ABDOMINAL PAIN UPPER [None]
  - ASCITES [None]
  - CHOLECYSTITIS ACUTE [None]
  - HEPATITIS [None]
  - PYREXIA [None]
  - RASH [None]
